FAERS Safety Report 16759715 (Version 4)
Quarter: 2020Q1

REPORT INFORMATION
  Report Type: Spontaneous
  Country: JP (occurrence: JP)
  Receive Date: 20190830
  Receipt Date: 20200228
  Transmission Date: 20200409
  Serious: Yes (Death, Hospitalization, Other)
  Sender: FDA-Public Use
  Company Number: JP-BAYER-2019-153784

PATIENT
  Age: 52 Year
  Sex: Female
  Weight: 58.8 kg

DRUGS (50)
  1. METHAPAIN [Interacting]
     Active Substance: METHADONE HYDROCHLORIDE
  2. METHAPAIN [Interacting]
     Active Substance: METHADONE HYDROCHLORIDE
     Dosage: 4 DF, QD
     Dates: start: 20190826
  3. PIARLE [Concomitant]
     Active Substance: LACTULOSE
     Dosage: 3 TIMNES A DAY, AFTER EACH MEAL
     Dates: start: 20190902
  4. HEMOPORISON [Concomitant]
     Dosage: UNK, BID
  5. TALION [BEPOTASTINE BESILATE] [Concomitant]
     Active Substance: BEPOTASTINE BESYLATE
     Dosage: UNK, BID
  6. RIFXIMA [Concomitant]
     Active Substance: RIFAXIMIN
     Dosage: UNK, TID
  7. LEVOCARNITINE. [Concomitant]
     Active Substance: LEVOCARNITINE
     Dosage: 10 ML, QD
     Dates: start: 20190920
  8. STIVARGA [Interacting]
     Active Substance: REGORAFENIB
     Indication: RECTAL CANCER STAGE III
     Dosage: DAILY DOSE 80 MG, 3 WEEKS ON 1 WEEK OFF
     Route: 048
     Dates: start: 20190723, end: 20190729
  9. METHAPAIN [Interacting]
     Active Substance: METHADONE HYDROCHLORIDE
     Dosage: 12 DF, TID, EVERY 8 HOURS, 06:00, 14:00, 22:00
     Dates: start: 20190827
  10. MAGNESIUM OXIDE. [Concomitant]
     Active Substance: MAGNESIUM OXIDE
     Dosage: UNK, TID
     Dates: start: 20190827
  11. STIBRON [Concomitant]
     Dosage: APPLICATION TO ITCHY PARTS
     Dates: start: 20190630
  12. MACROGOL;POTASSIUM CHLORIDE;SODIUM BICARBONATE;SODIUM CHLORIDE [Concomitant]
     Active Substance: POLYETHYLENE GLYCOL\POTASSIUM CHLORIDE\SODIUM BICARBONATE\SODIUM CHLORIDE
     Dosage: UNK, BID
  13. METHAPAIN [Interacting]
     Active Substance: METHADONE HYDROCHLORIDE
     Dosage: 9 DF, TID, EVERY 8 HOURS
     Dates: start: 20190528
  14. METHAPAIN [Interacting]
     Active Substance: METHADONE HYDROCHLORIDE
     Dosage: 12 DF, TID, EVERY 8 HOURS, 06:00, 14:00, 22:00
     Dates: start: 20190618
  15. CONSTAN [ALPRAZOLAM] [Concomitant]
     Active Substance: ALPRAZOLAM
     Dosage: UNK UNK, TID
  16. HEPARINOID [Concomitant]
     Active Substance: CHONDROITIN SULFATE (BOVINE)
     Dosage: APPLICATION TO AFFECTED AREAS SEVERAL TIMES A DAY
  17. SODIUM PICOSULFATE [Concomitant]
     Active Substance: SODIUM PICOSULFATE
     Dosage: 5-30 DROPS, ADJUST AS APPROPRIATE
  18. AZUNOL GARGLE LIQUID [Concomitant]
     Dosage: 3 TO 5 TIMES A DAY
  19. FUNGIZONE [Concomitant]
     Active Substance: AMPHOTERICIN B
     Dosage: UNK, TID
     Dates: start: 20190918
  20. ABSTRAL [Concomitant]
     Active Substance: FENTANYL CITRATE
  21. WHITE PETROLATUM [Concomitant]
     Active Substance: PETROLATUM
     Dosage: APPLICATION TO AFFECTED AREAS SEVERAL TIMES A DAY
  22. FENTOS [Concomitant]
     Active Substance: FENTANYL
     Dosage: UNK
     Dates: start: 201803
  23. OPSO [Concomitant]
     Active Substance: MORPHINE HYDROCHLORIDE
     Dosage: AT THE TIME OF PAIN
  24. MAGNESIUM OXIDE. [Concomitant]
     Active Substance: MAGNESIUM OXIDE
     Dosage: UNK, TID
  25. HEMOPORISON [Concomitant]
     Dosage: AT THE TIME OF PAIN ASSOCIATED WITH HEMORRHOID
     Dates: start: 20190806
  26. STIBRON [Concomitant]
     Dosage: APPLICATION TO AFFECTED AREAS TWICE A DAY
     Dates: start: 20190702
  27. GOOFICE [Concomitant]
     Active Substance: ELOBIXIBAT
     Dosage: UNK, QD
  28. LEVOCARNITINE. [Concomitant]
     Active Substance: LEVOCARNITINE
     Dosage: 10 ML, TID
  29. BAKTAR [Concomitant]
     Active Substance: SULFAMETHOXAZOLE\TRIMETHOPRIM
     Dosage: 1 G, QD
     Dates: start: 20190918
  30. AMITIZA [Concomitant]
     Active Substance: LUBIPROSTONE
     Dosage: 1 DF, BID
     Dates: start: 20190925
  31. OFLOXIN [OFLOXACIN] [Concomitant]
  32. STIVARGA [Interacting]
     Active Substance: REGORAFENIB
     Indication: RECTAL CANCER STAGE III
     Dosage: 80 MG, QD
     Route: 048
     Dates: start: 20190730, end: 20190806
  33. MAGNESIUM OXIDE. [Concomitant]
     Active Substance: MAGNESIUM OXIDE
     Dosage: 1 DF, QD
     Dates: start: 20190826
  34. URSODEOXYCHOLIC ACID [Concomitant]
     Active Substance: URSODIOL
     Dosage: 2 DF, QD
     Dates: start: 20190913
  35. LEVOCARNITINE. [Concomitant]
     Active Substance: LEVOCARNITINE
     Dosage: 10 ML, TID
     Dates: start: 20190920
  36. MOSAPRIDE CITRATE [Concomitant]
     Active Substance: MOSAPRIDE CITRATE
     Dosage: UNK, TID
     Dates: start: 20191003
  37. STIVARGA [Interacting]
     Active Substance: REGORAFENIB
     Indication: COLORECTAL CANCER RECURRENT
     Dosage: DAILY DOSE 160 MG, 3 WEEKS ON 1 WEEK OFF
     Route: 048
     Dates: start: 20190709, end: 20190714
  38. METHAPAIN [Interacting]
     Active Substance: METHADONE HYDROCHLORIDE
     Dosage: 11 DF, 3-4-4, 06:00, 14:00, 22:00
     Dates: start: 20190607
  39. PIARLE [Concomitant]
     Active Substance: LACTULOSE
     Dosage: AT THE TIME OF CONSTIPATION
     Dates: start: 20190822
  40. LANSOPRAZOLE. [Concomitant]
     Active Substance: LANSOPRAZOLE
     Dosage: 1 DF, QD
  41. SAMTIREL [Concomitant]
     Active Substance: ATOVAQUONE
     Dosage: UNK, QD
     Dates: start: 20190927
  42. SYMPROIC [Concomitant]
     Active Substance: NALDEMEDINE
     Dosage: 1 DF, QD
  43. CANDESARTAN. [Concomitant]
     Active Substance: CANDESARTAN
     Dosage: 1 DF, QD
     Dates: start: 20190625
  44. URSODEOXYCHOLIC ACID [Concomitant]
     Active Substance: URSODIOL
     Dosage: UNK, TID
     Dates: start: 20190823
  45. ENEVO [Concomitant]
     Dosage: 1 DF, QD
     Dates: start: 20191004
  46. STIVARGA [Suspect]
     Active Substance: REGORAFENIB
     Indication: RECTAL CANCER STAGE III
     Dosage: DAILY DOSE 160 MG, 3 WEEKS ON 1 WEEK OFF
     Route: 048
     Dates: start: 20190618, end: 20190624
  47. PIARLE [Concomitant]
     Active Substance: LACTULOSE
     Dosage: 3 TIMNES A DAY, AFTER EACH MEAL
  48. CONSTAN [ALPRAZOLAM] [Concomitant]
     Active Substance: ALPRAZOLAM
     Dosage: 1 DF, QD
     Dates: start: 20190826
  49. CELECOX [Concomitant]
     Active Substance: CELECOXIB
     Dosage: UNK UNK, BID
  50. URSODEOXYCHOLIC ACID [Concomitant]
     Active Substance: URSODIOL
     Dosage: UNK, TID
     Dates: start: 20190913

REACTIONS (14)
  - Alanine aminotransferase increased [Not Recovered/Not Resolved]
  - Blood bilirubin increased [Not Recovered/Not Resolved]
  - International normalised ratio abnormal [Not Recovered/Not Resolved]
  - Colorectal cancer recurrent [None]
  - Rash [Recovered/Resolved]
  - Lymphopenia [Fatal]
  - Aspartate aminotransferase increased [Not Recovered/Not Resolved]
  - Ammonia increased [Recovered/Resolved]
  - Respiratory failure [Fatal]
  - Hepatitis fulminant [Not Recovered/Not Resolved]
  - Labelled drug-drug interaction medication error [None]
  - Pneumonia cytomegaloviral [Fatal]
  - Acute hepatic failure [Fatal]
  - Drug interaction [None]

NARRATIVE: CASE EVENT DATE: 20190625
